FAERS Safety Report 10219089 (Version 1)
Quarter: 2014Q2

REPORT INFORMATION
  Report Type: Report from Study
  Country: BR (occurrence: BR)
  Receive Date: 20140605
  Receipt Date: 20140605
  Transmission Date: 20141212
  Serious: Yes (Other)
  Sender: FDA-Public Use
  Company Number: BR-ABBVIE-14P-020-1241867-00

PATIENT
  Age: 65 Year
  Sex: Female
  Weight: 100 kg

DRUGS (2)
  1. HUMIRA [Suspect]
     Indication: ANKYLOSING SPONDYLITIS
     Route: 048
     Dates: start: 20140201, end: 201403
  2. PREDNISONE [Suspect]
     Indication: ARTHRITIS
     Dosage: HALF TABLET DAILY
     Route: 048
     Dates: start: 20140301

REACTIONS (7)
  - Ocular vascular disorder [Recovering/Resolving]
  - Vision blurred [Recovering/Resolving]
  - Visual impairment [Recovering/Resolving]
  - Cough [Recovered/Resolved]
  - Increased bronchial secretion [Recovered/Resolved]
  - Vision blurred [Recovering/Resolving]
  - Blood glucose abnormal [Unknown]
